FAERS Safety Report 10067243 (Version 1)
Quarter: 2014Q2

REPORT INFORMATION
  Report Type: Spontaneous
  Country: US (occurrence: US)
  Receive Date: 20140409
  Receipt Date: 20140409
  Transmission Date: 20141212
  Serious: Yes (Other)
  Sender: FDA-Public Use
  Company Number: US-TEVA-473712USA

PATIENT
  Sex: Female

DRUGS (4)
  1. PROAIR HFA [Suspect]
     Indication: BRONCHIAL HYPERREACTIVITY
     Route: 055
  2. METHYLPREDNISOLONE [Suspect]
     Dosage: 2 DOSES
     Dates: start: 201311
  3. SYMBICORT [Suspect]
     Indication: BRONCHIAL HYPERREACTIVITY
     Dates: start: 201311, end: 20140402
  4. PROVENTIL [Concomitant]
     Indication: BRONCHIAL HYPERREACTIVITY

REACTIONS (3)
  - Glaucoma [Not Recovered/Not Resolved]
  - Ocular discomfort [Not Recovered/Not Resolved]
  - Wheezing [Not Recovered/Not Resolved]
